FAERS Safety Report 5259754-7 (Version None)
Quarter: 2007Q1

REPORT INFORMATION
  Report Type: 
  Country: None (occurrence: None)
  Receive Date: 20061117
  Receipt Date: 20060525
  Transmission Date: 20070707
  Serious: Yes (Other)
  Sender: FDA-Public Use
  Company Number: US-JNJFOC-20060506013

PATIENT
  Age: 89 Year
  Sex: Male

DRUGS (1)
  1. LEVAQUIN [Suspect]
     Indication: UPPER RESPIRATORY TRACT INFECTION
     Dosage: 750 MG, ORAL, 500 MG, ORAL
     Route: 048
     Dates: start: 20060501

REACTIONS (1)
  - CONVULSION [None]
